FAERS Safety Report 9885108 (Version 2)
Quarter: 2014Q1

REPORT INFORMATION
  Report Type: Not Available
  Country: GB (occurrence: GB)
  Receive Date: 20140210
  Receipt Date: 20140328
  Transmission Date: 20141002
  Serious: Yes (Life-Threatening, Hospitalization, Other)
  Sender: FDA-Public Use
  Company Number: GB-PURDUE-USA-2014-0110892

PATIENT
  Age: 26 Year
  Sex: Female

DRUGS (4)
  1. TRAMADOL (SIMILAR TO NDA 21-745) [Suspect]
     Indication: ALCOHOL WITHDRAWAL SYNDROME
     Dosage: UNK
     Route: 065
  2. CITALOPRAM [Suspect]
     Indication: PRODUCT USED FOR UNKNOWN INDICATION
     Dosage: 30 MG, DAILY
     Route: 065
  3. CODEINE [Suspect]
     Indication: ALCOHOL WITHDRAWAL SYNDROME
     Dosage: UNK
     Route: 065
  4. TOPAMAX [Suspect]
     Indication: EPILEPSY
     Dosage: UNK
     Route: 048
     Dates: start: 201105, end: 2011

REACTIONS (11)
  - Organ failure [Unknown]
  - Brain oedema [Unknown]
  - Acidosis [Unknown]
  - Dialysis [Unknown]
  - Life support [Unknown]
  - Aggression [Unknown]
  - Personality change [Unknown]
  - Convulsion [Unknown]
  - Accidental overdose [Unknown]
  - Coma [Unknown]
  - Weight decreased [Unknown]
